FAERS Safety Report 5354354-2 (Version None)
Quarter: 2007Q2

REPORT INFORMATION
  Report Type: 
  Country: None (occurrence: None)
  Receive Date: 20070521
  Receipt Date: 20070213
  Transmission Date: 20071010
  Serious: No
  Sender: FDA-Public Use
  Company Number: WAES 0702USA02360

PATIENT
  Age: 78 Year
  Sex: Female

DRUGS (10)
  1. JANUVIA [Suspect]
     Indication: DIABETES MELLITUS
     Dosage: SEE IMAGE
     Route: 048
     Dates: start: 20070101, end: 20070101
  2. JANUVIA [Suspect]
     Indication: DIABETES MELLITUS
     Dosage: SEE IMAGE
     Route: 048
     Dates: start: 20070101, end: 20070101
  3. JANUVIA [Suspect]
     Indication: DIABETES MELLITUS
     Dosage: SEE IMAGE
     Route: 048
     Dates: start: 20070101
  4. CATAPRES [Concomitant]
  5. LASIX [Concomitant]
  6. NORVASC [Concomitant]
  7. ALBUTEROL [Concomitant]
  8. ALLOPURINOL [Concomitant]
  9. ASPIRIN [Concomitant]
  10. ISOSORBIDE MONONITRATE [Concomitant]

REACTIONS (2)
  - BLOOD GLUCOSE INCREASED [None]
  - THERAPEUTIC RESPONSE UNEXPECTED [None]
